FAERS Safety Report 14462601 (Version 1)
Quarter: 2018Q1

REPORT INFORMATION
  Report Type: Other
  Country: US (occurrence: US)
  Receive Date: 20180130
  Receipt Date: 20180130
  Transmission Date: 20180509
  Serious: No
  Sender: FDA-Public Use
  Company Number: US-ACORDA-ACO_144859_2017

PATIENT
  Age: 59 Year
  Sex: Female
  Weight: 72.56 kg

DRUGS (3)
  1. AMPYRA [Suspect]
     Active Substance: DALFAMPRIDINE
     Indication: MULTIPLE SCLEROSIS
  2. VITAMIN D3 [Concomitant]
     Active Substance: CHOLECALCIFEROL
     Indication: PRODUCT USED FOR UNKNOWN INDICATION
     Dosage: UNK
     Route: 065
  3. AMPYRA [Suspect]
     Active Substance: DALFAMPRIDINE
     Indication: GAIT DISTURBANCE
     Dosage: 10 MG, QD
     Route: 048
     Dates: start: 201711

REACTIONS (6)
  - Fall [Unknown]
  - Gait disturbance [None]
  - Wrist fracture [Not Recovered/Not Resolved]
  - Discomfort [Unknown]
  - Motor dysfunction [Not Recovered/Not Resolved]
  - Inappropriate schedule of drug administration [None]

NARRATIVE: CASE EVENT DATE: 20171122
